FAERS Safety Report 8927585 (Version 2)
Quarter: 2013Q4

REPORT INFORMATION
  Report Type: Spontaneous
  Country: US (occurrence: US)
  Receive Date: 20121127
  Receipt Date: 20131216
  Transmission Date: 20140711
  Serious: Yes (Other)
  Sender: FDA-Public Use
  Company Number: US-PFIZER INC-2012296831

PATIENT
  Sex: Female

DRUGS (1)
  1. LIPITOR [Suspect]
     Dosage: UNK

REACTIONS (7)
  - Lung infection [Unknown]
  - Muscle spasms [Unknown]
  - Muscle spasms [Recovering/Resolving]
  - Hyperhidrosis [Unknown]
  - Heart rate irregular [Unknown]
  - Angiopathy [Unknown]
  - Sputum retention [Unknown]
